FAERS Safety Report 9395845 (Version 1)
Quarter: 2013Q3

REPORT INFORMATION
  Report Type: Spontaneous
  Country: IE (occurrence: None)
  Receive Date: 20130708
  Receipt Date: 20130708
  Transmission Date: 20140515
  Serious: Yes (Life-Threatening)
  Sender: FDA-Public Use
  Company Number: 2013TP000382

PATIENT
  Age: 74 Year
  Sex: Female

DRUGS (22)
  1. VERSATIS [Suspect]
     Indication: PAIN
     Route: 061
  2. DOMPERIDONE (DOMPERIDONE) [Suspect]
     Route: 048
  3. CITALOPRAM (CITALOPRAM) [Suspect]
     Indication: DEPRESSION
     Route: 048
  4. ARICEPT [Suspect]
     Indication: DEMENTIA
     Route: 048
  5. MEMANTINE [Suspect]
     Indication: DEMENTIA
     Route: 048
  6. TELMISARTAN [Concomitant]
  7. EZETIMIBE [Concomitant]
  8. ATORVASTATIN [Concomitant]
  9. SALAMOL EASI-BREATHE [Concomitant]
  10. ZOLPIDEM [Concomitant]
  11. BECLOMETHASONE [Concomitant]
  12. FOSAVANCE [Concomitant]
  13. CALCICHEW [Concomitant]
  14. PANTOPRAZOLE [Concomitant]
  15. ASPIRIN /00002701/ [Concomitant]
  16. BETAHISTINE [Concomitant]
  17. FUROSEMIDE [Concomitant]
  18. NITROFURANTOIN [Concomitant]
  19. BISOPROLOL [Concomitant]
  20. AMLODIPINE [Concomitant]
  21. FELDENE [Concomitant]
  22. PARACETAMOL [Concomitant]

REACTIONS (3)
  - Ventricular fibrillation [None]
  - Electrocardiogram QT prolonged [None]
  - Sinus arrest [None]
